FAERS Safety Report 5674188-9 (Version None)
Quarter: 2008Q1

REPORT INFORMATION
  Report Type: 
  Country: None (occurrence: None)
  Receive Date: 20080320
  Receipt Date: 20080316
  Transmission Date: 20080703
  Serious: Yes (Life-Threatening)
  Sender: FDA-Public Use
  Company Number: IL-SANOFI-SYNTHELABO-F01200800442

PATIENT
  Sex: Male

DRUGS (3)
  1. LEUCOVORIN CALCIUM [Suspect]
     Dosage: UNK
     Route: 041
     Dates: start: 20080309, end: 20080309
  2. FLUOROURACIL [Suspect]
     Dosage: UNK
     Route: 041
     Dates: start: 20080309, end: 20080309
  3. OXALIPLATIN [Suspect]
     Indication: COLON CANCER
     Dosage: UNK
     Route: 041
     Dates: start: 20080309, end: 20080309

REACTIONS (1)
  - ACUTE MYOCARDIAL INFARCTION [None]
